FAERS Safety Report 4591739-6 (Version None)
Quarter: 2005Q1

REPORT INFORMATION
  Report Type: 
  Country: None (occurrence: None)
  Receive Date: 20050218
  Receipt Date: 20050207
  Transmission Date: 20050727
  Serious: No
  Sender: FDA-Public Use
  Company Number: 02100-USA-05-0024

PATIENT
  Age: 66 Year
  Sex: Male

DRUGS (5)
  1. PLETAL [Suspect]
     Indication: INTERMITTENT CLAUDICATION
     Dosage: 100 MG QD ORAL
     Route: 048
     Dates: start: 19990101, end: 20050101
  2. GENERIC CILOSTAZOL [Suspect]
     Indication: INTERMITTENT CLAUDICATION
     Dosage: 100 MG QD ORAL
     Route: 048
     Dates: start: 20050101, end: 20050101
  3. GLYBURIDE [Concomitant]
  4. ACTOS [Concomitant]
  5. TOPROL-XL [Concomitant]

REACTIONS (8)
  - BLISTER [None]
  - DRUG ERUPTION [None]
  - ERYTHEMA [None]
  - HERPES SIMPLEX [None]
  - PROSTATE CANCER [None]
  - PRURITUS [None]
  - RENAL IMPAIRMENT [None]
  - VIRAL INFECTION [None]
